FAERS Safety Report 21526759 (Version 3)
Quarter: 2022Q4

REPORT INFORMATION
  Report Type: Report from Study
  Country: IT (occurrence: IT)
  Receive Date: 20221031
  Receipt Date: 20221213
  Transmission Date: 20230113
  Serious: Yes (Other)
  Sender: FDA-Public Use
  Company Number: IT-CELLTRION INC.-2022IT017752

PATIENT

DRUGS (27)
  1. TRASTUZUMAB [Suspect]
     Active Substance: TRASTUZUMAB
     Indication: HER2 positive breast cancer
     Dosage: 6 MILLIGRAM/KILOGRAM EVERY 3 WEEKS
     Route: 042
     Dates: start: 20210324
  2. TRASTUZUMAB [Suspect]
     Active Substance: TRASTUZUMAB
     Dosage: 8MG/KG EVERY 3 WEEKS
     Route: 042
     Dates: start: 20211029, end: 20211029
  3. TRASTUZUMAB [Suspect]
     Active Substance: TRASTUZUMAB
     Dosage: 420 MILLIGRAM EVERY 3 WEEKS/INFUSION, SOLUTION
     Route: 042
     Dates: start: 20220210
  4. TRASTUZUMAB [Suspect]
     Active Substance: TRASTUZUMAB
     Dosage: 6MG/KG EVERY 3 WEEKS
     Route: 042
     Dates: start: 20220210
  5. TRASTUZUMAB [Suspect]
     Active Substance: TRASTUZUMAB
     Dosage: 6MG/KG EVERY 3 WEEKS
     Route: 042
     Dates: start: 20211126, end: 20220202
  6. TRASTUZUMAB [Suspect]
     Active Substance: TRASTUZUMAB
     Dosage: 432 MG, EVERY 3 WEEKS
     Route: 042
     Dates: start: 20190412, end: 20190412
  7. TRASTUZUMAB [Suspect]
     Active Substance: TRASTUZUMAB
     Dosage: 324 MG, EVERY 3 WEEKS
     Route: 042
     Dates: start: 20190505, end: 20200803
  8. DOCETAXEL [Suspect]
     Active Substance: DOCETAXEL
     Indication: HER2 positive breast cancer
     Dosage: 116MG EVERY 3 WEEKS (MOST RECENT DOSE PRIOR TO THE EVENT: 21/JUN/2019)
     Route: 042
     Dates: start: 20190412, end: 20190412
  9. DOCETAXEL [Suspect]
     Active Substance: DOCETAXEL
     Dosage: 90MG EVERY 3 WEEKS
     Route: 042
     Dates: start: 20190503, end: 20190503
  10. DOCETAXEL [Suspect]
     Active Substance: DOCETAXEL
     Dosage: 80MG EVERY 3 WEEKS
     Route: 042
     Dates: start: 20190531, end: 20190531
  11. DOCETAXEL [Suspect]
     Active Substance: DOCETAXEL
     Dosage: 90MG EVERY 3 WEEKS
     Route: 042
     Dates: start: 20190621, end: 20190924
  12. PERTUZUMAB [Suspect]
     Active Substance: PERTUZUMAB
     Indication: HER2 positive breast cancer
     Dosage: 840MG EVERY 3 WEEKS (MOST RECENT DOSE PRIOR TO THE EVENT: 29/OCT/2019)
     Route: 042
     Dates: start: 20190412, end: 20190412
  13. PERTUZUMAB [Suspect]
     Active Substance: PERTUZUMAB
     Dosage: 420MG EVERY 3 WEEKS
     Route: 042
     Dates: start: 20190503, end: 20200803
  14. PERTUZUMAB [Suspect]
     Active Substance: PERTUZUMAB
     Dosage: 840MG EVERY 3 WEEKS
     Route: 042
     Dates: start: 20191029, end: 20191029
  15. PERTUZUMAB [Suspect]
     Active Substance: PERTUZUMAB
     Dosage: 420MG EVERY 3 WEEKS
     Route: 042
     Dates: start: 20211126, end: 20220202
  16. PACLITAXEL [Suspect]
     Active Substance: PACLITAXEL
     Indication: HER2 positive breast cancer
     Dosage: 80 MG, EVERY 1 WEEK
     Route: 042
     Dates: start: 20211126, end: 20220202
  17. PACLITAXEL [Suspect]
     Active Substance: PACLITAXEL
     Dosage: 80 MG, EVERY 1 WEEK/ ROA-20045000
     Route: 042
     Dates: start: 20220210, end: 20220318
  18. METHYLPREDNISOLONE [Concomitant]
     Active Substance: METHYLPREDNISOLONE
  19. CHLORPHENIRAMINE MALEATE [Concomitant]
     Active Substance: CHLORPHENIRAMINE MALEATE
  20. PREDNISONE [Concomitant]
     Active Substance: PREDNISONE
     Dosage: ONGOING = CHECKED
     Dates: start: 20220609
  21. OMEPRAZOLE [Concomitant]
     Active Substance: OMEPRAZOLE
     Dosage: UNK
  22. OMEPRAZOLE [Concomitant]
     Active Substance: OMEPRAZOLE
     Dosage: ONGOING = CHECKED
     Dates: start: 20190615
  23. DEXAMETHASONE [Concomitant]
     Active Substance: DEXAMETHASONE
  24. AMOXICILLIN [Concomitant]
     Active Substance: AMOXICILLIN
  25. ACETAMINOPHEN [Concomitant]
     Active Substance: ACETAMINOPHEN
     Dosage: ONGOING = CHECKED
     Dates: start: 20210818
  26. FLUIMUCIL [Concomitant]
     Active Substance: ACETYLCYSTEINE
  27. AMOXICILLIN\CLAVULANATE POTASSIUM [Concomitant]
     Active Substance: AMOXICILLIN\CLAVULANATE POTASSIUM

REACTIONS (3)
  - Neutropenia [Recovered/Resolved]
  - Neutropenia [Recovered/Resolved]
  - Alanine aminotransferase increased [Recovered/Resolved]

NARRATIVE: CASE EVENT DATE: 20211119
